FAERS Safety Report 5871331-3 (Version None)
Quarter: 2008Q3

REPORT INFORMATION
  Report Type: 
  Country: None (occurrence: None)
  Receive Date: 20080904
  Receipt Date: 20080904
  Transmission Date: 20090109
  Serious: Yes (Life-Threatening)
  Sender: FDA-Public Use
  Company Number: None

PATIENT
  Age: 56 Year
  Sex: Male
  Weight: 97.5234 kg

DRUGS (1)
  1. CHANTIX [Suspect]
     Indication: SMOKING CESSATION THERAPY
     Dosage: ONE 2 TIMES DAY AFTER MEALS
     Dates: start: 20080807, end: 20080825

REACTIONS (7)
  - ABNORMAL DREAMS [None]
  - GLOSSODYNIA [None]
  - HOMICIDAL IDEATION [None]
  - INSOMNIA [None]
  - MUSCULOSKELETAL STIFFNESS [None]
  - PAIN [None]
  - SUICIDAL IDEATION [None]
